FAERS Safety Report 8127833-2 (Version None)
Quarter: 2012Q1

REPORT INFORMATION
  Report Type: 
  Country: None (occurrence: None)
  Receive Date: 20120210
  Receipt Date: 20110718
  Transmission Date: 20120608
  Serious: No
  Sender: FDA-Public Use
  Company Number: US-GLAXOSMITHKLINE-A0937543A

PATIENT
  Age: 17 Year
  Sex: Female
  Weight: 54.5 kg

DRUGS (2)
  1. PAXIL [Suspect]
     Indication: POSTPARTUM DEPRESSION
     Dosage: 10MG PER DAY
     Route: 048
     Dates: start: 20110614
  2. CONCERTA [Suspect]
     Indication: ATTENTION DEFICIT/HYPERACTIVITY DISORDER
     Dosage: 18MG PER DAY
     Route: 048
     Dates: start: 20110717

REACTIONS (3)
  - DECREASED APPETITE [None]
  - GASTRIC DISORDER [None]
  - WEIGHT DECREASED [None]
